FAERS Safety Report 23909656 (Version 1)
Quarter: 2024Q2

REPORT INFORMATION
  Report Type: Report from Study
  Country: US (occurrence: US)
  Receive Date: 20240528
  Receipt Date: 20240528
  Transmission Date: 20240716
  Serious: Yes (Other)
  Sender: FDA-Public Use
  Company Number: US-ABBVIE-5768779

PATIENT
  Age: 44 Year
  Sex: Female
  Weight: 83 kg

DRUGS (4)
  1. HUMIRA [Suspect]
     Active Substance: ADALIMUMAB
     Indication: Ankylosing spondylitis
     Route: 058
     Dates: start: 2021, end: 20240412
  2. ADVIL [Concomitant]
     Active Substance: IBUPROFEN
     Indication: Product used for unknown indication
  3. PREDNISONE [Concomitant]
     Active Substance: PREDNISONE
     Indication: Arthritis
  4. ACETAMINOPHEN\HYDROCODONE [Concomitant]
     Active Substance: ACETAMINOPHEN\HYDROCODONE
     Indication: Procedural pain

REACTIONS (10)
  - Tendon rupture [Recovered/Resolved]
  - Swelling [Recovering/Resolving]
  - Inflammation [Recovered/Resolved]
  - Drug ineffective [Not Recovered/Not Resolved]
  - Joint swelling [Recovering/Resolving]
  - Procedural pain [Recovered/Resolved]
  - Joint range of motion decreased [Recovering/Resolving]
  - Arthralgia [Recovering/Resolving]
  - Arthritis [Recovering/Resolving]
  - Musculoskeletal stiffness [Not Recovered/Not Resolved]

NARRATIVE: CASE EVENT DATE: 20231101
